FAERS Safety Report 8781425 (Version 3)
Quarter: 2012Q4

REPORT INFORMATION
  Report Type: 
  Country: US (occurrence: US)
  Receive Date: 20120913
  Receipt Date: 20121101
  Transmission Date: 20130627
  Serious: Yes (Death, Hospitalization)
  Sender: FDA-Public Use
  Company Number: US-ACTELION-A-NJ2012-68141

PATIENT
  Age: 72 Year
  Sex: Male

DRUGS (4)
  1. TRACLEER [Suspect]
     Indication: PULMONARY ARTERIAL HYPERTENSION
     Dosage: UNK
     Route: 048
     Dates: end: 20121013
  2. REMODULIN [Concomitant]
  3. SILDENAFIL [Concomitant]
  4. ASPIRIN [Concomitant]

REACTIONS (6)
  - Pulmonary arterial hypertension [Fatal]
  - Hypoxia [Fatal]
  - Sepsis [Unknown]
  - Pyrexia [Unknown]
  - Device related infection [Unknown]
  - Headache [Unknown]
